FAERS Safety Report 24575765 (Version 6)
Quarter: 2024Q4

REPORT INFORMATION
  Report Type: Report from Study
  Country: ES (occurrence: ES)
  Receive Date: 20241104
  Receipt Date: 20241202
  Transmission Date: 20250114
  Serious: Yes (Other)
  Sender: ABBVIE
  Company Number: ES-ABBVIE-5983516

PATIENT
  Age: 66 Year
  Sex: Male

DRUGS (6)
  1. CARBIDOPA\LEVODOPA [Suspect]
     Active Substance: CARBIDOPA\LEVODOPA
     Indication: Parkinson^s disease
     Route: 050
  2. CARBIDOPA\LEVODOPA [Suspect]
     Active Substance: CARBIDOPA\LEVODOPA
     Dosage: FIRST ADMIN DATE- 2024
     Route: 050
     Dates: start: 202411
  3. CARBIDOPA\LEVODOPA [Suspect]
     Active Substance: CARBIDOPA\LEVODOPA
     Indication: Parkinson^s disease
     Dosage: 240 MG/ML + 12 MG/ML SOLUCION PARA PERFUSION
     Route: 058
     Dates: start: 20241021, end: 20241102
  4. CARBIDOPA\LEVODOPA [Suspect]
     Active Substance: CARBIDOPA\LEVODOPA
     Dosage: RESUMED WITH THE SAME PRESCRIBED DOSES, 240 MG/ML + 12 MG/ML SOLUCION PARA PERFUSION
     Route: 058
     Dates: start: 202411, end: 202411
  5. CARBIDOPA\LEVODOPA [Suspect]
     Active Substance: CARBIDOPA\LEVODOPA
     Dosage: MODIFIED THE DOSES, 240 MG/ML + 12 MG/ML SOLUCION PARA PERFUSION
     Route: 058
     Dates: start: 202411, end: 202411
  6. QUETIAPINE [Concomitant]
     Active Substance: QUETIAPINE
     Indication: Obsessive thoughts
     Route: 065
     Dates: start: 202411

REACTIONS (2)
  - Dizziness [Not Recovered/Not Resolved]
  - Malaise [Unknown]

NARRATIVE: CASE EVENT DATE: 20241026
